FAERS Safety Report 16300259 (Version 2)
Quarter: 2021Q1

REPORT INFORMATION
  Report Type: Spontaneous
  Country: US (occurrence: US)
  Receive Date: 20190510
  Receipt Date: 20210216
  Transmission Date: 20210419
  Serious: Yes (Other)
  Sender: FDA-Public Use
  Company Number: PHEH2019US020301

PATIENT
  Age: 60 Year
  Sex: Female

DRUGS (1)
  1. TASIGNA [Suspect]
     Active Substance: NILOTINIB
     Indication: CHRONIC MYELOID LEUKAEMIA
     Dosage: 400 MG, BID
     Route: 065
     Dates: start: 20091204, end: 2018

REACTIONS (15)
  - Polyneuropathy [Unknown]
  - Arterial occlusive disease [Unknown]
  - Emotional distress [Unknown]
  - Peripheral artery stenosis [Unknown]
  - Peripheral vascular disorder [Unknown]
  - Back pain [Unknown]
  - Pain [Unknown]
  - Deep vein thrombosis [Unknown]
  - Intervertebral disc disorder [Unknown]
  - Dizziness [Unknown]
  - Injury [Unknown]
  - Muscle spasms [Unknown]
  - Anxiety [Unknown]
  - Pancreatitis acute [Unknown]
  - Arteriosclerosis [Unknown]

NARRATIVE: CASE EVENT DATE: 2011
